FAERS Safety Report 5027805-0 (Version None)
Quarter: 2006Q2

REPORT INFORMATION
  Report Type: 
  Country: None (occurrence: None)
  Receive Date: 20060614
  Receipt Date: 20060614
  Transmission Date: 20061013
  Serious: Yes (Hospitalization)
  Sender: FDA-Public Use
  Company Number: None

PATIENT
  Age: 62 Year
  Sex: Male
  Weight: 81.6475 kg

DRUGS (4)
  1. REVLIMID [Suspect]
     Indication: MULTIPLE MYELOMA
     Dosage: 25 MG DAYS 1-21 OF 28 CYCLE PO
     Route: 048
     Dates: start: 20060524, end: 20060609
  2. DEXAMETHASONE TAB [Suspect]
     Indication: MULTIPLE MYELOMA
     Dosage: 40 MG DAYS 1, 8, 15, 22 PO
     Route: 048
     Dates: start: 20060524
  3. DEXAMETHASONE TAB [Suspect]
     Indication: MULTIPLE MYELOMA
     Dosage: 40 MG DAYS 1, 8, 15, 22 PO
     Route: 048
     Dates: start: 20060531
  4. DEXAMETHASONE TAB [Suspect]
     Indication: MULTIPLE MYELOMA
     Dosage: 40 MG DAYS 1, 8, 15, 22 PO
     Route: 048
     Dates: start: 20060607

REACTIONS (1)
  - RENAL FAILURE ACUTE [None]
